FAERS Safety Report 9220815 (Version 2)
Quarter: 2013Q2

REPORT INFORMATION
  Report Type: Spontaneous
  Country: US (occurrence: US)
  Receive Date: 20130409
  Receipt Date: 20130523
  Transmission Date: 20140414
  Serious: No
  Sender: FDA-Public Use
  Company Number: US-PFIZER INC-2013109658

PATIENT
  Age: 59 Year
  Sex: Female
  Weight: 77.1 kg

DRUGS (3)
  1. ALDACTONE [Suspect]
     Indication: BLOOD PRESSURE ABNORMAL
     Dosage: 50 MG, 2X/DAY
     Route: 048
     Dates: start: 201303, end: 201304
  2. ALDACTONE [Suspect]
     Indication: OEDEMA
  3. ESTRADIOL [Concomitant]
     Indication: HOT FLUSH
     Dosage: 1 MG, 1X/DAY

REACTIONS (1)
  - Laryngitis [Recovered/Resolved]
